FAERS Safety Report 6554113-9 (Version None)
Quarter: 2010Q1

REPORT INFORMATION
  Report Type: 
  Country: None (occurrence: None)
  Receive Date: 20100125
  Receipt Date: 20100125
  Transmission Date: 20100710
  Serious: Yes (Other)
  Sender: FDA-Public Use
  Company Number: None

PATIENT
  Age: 42 Year
  Sex: Female
  Weight: 67.586 kg

DRUGS (1)
  1. MERIDIA [Suspect]
     Indication: OBESITY
     Dosage: 10MG 1 Q DAILY PO
     Route: 048
     Dates: start: 20090801, end: 20091210

REACTIONS (5)
  - ASTHENIA [None]
  - FATIGUE [None]
  - MYALGIA [None]
  - PALPITATIONS [None]
  - TREMOR [None]
